FAERS Safety Report 5705824-6 (Version None)
Quarter: 2008Q2

REPORT INFORMATION
  Report Type: 
  Country: None (occurrence: None)
  Receive Date: 20080414
  Receipt Date: 20080414
  Transmission Date: 20081010
  Serious: Yes (Other)
  Sender: FDA-Public Use
  Company Number: None

PATIENT
  Sex: Male
  Weight: 74.3899 kg

DRUGS (2)
  1. CIPRO [Suspect]
     Indication: LITHOTRIPSY
     Dosage: 400 MG ONCE IV DRIP
     Route: 041
     Dates: start: 20080410, end: 20080410
  2. CIPRO [Suspect]
     Indication: PREOPERATIVE CARE
     Dosage: 400 MG ONCE IV DRIP
     Route: 041
     Dates: start: 20080410, end: 20080410

REACTIONS (3)
  - INFUSION RELATED REACTION [None]
  - PHLEBITIS [None]
  - PRURITUS [None]
